FAERS Safety Report 4602187-4 (Version None)
Quarter: 2005Q2

REPORT INFORMATION
  Report Type: 
  Country: None (occurrence: None)
  Receive Date: 20050215
  Receipt Date: 20040929
  Transmission Date: 20051028
  Serious: Yes (Life-Threatening)
  Sender: FDA-Public Use
  Company Number: MC200400634

PATIENT

DRUGS (3)
  1. ANGIOMAX [Suspect]
     Indication: ACUTE MYOCARDIAL INFARCTION
     Dosage: 0.75 MG/KG, BOLUS, IV BOLUS;1.75 MG/KG, HR, INTRAVENOUS
     Route: 040
  2. PLAVIX [Concomitant]
  3. ACETYLSALICYLIC ACID SRT [Concomitant]

REACTIONS (2)
  - PNEUMONIA ASPIRATION [None]
  - THROMBOSIS [None]
